FAERS Safety Report 5998903-X (Version None)
Quarter: 2008Q4

REPORT INFORMATION
  Report Type: 
  Country: None (occurrence: None)
  Receive Date: 20081213
  Receipt Date: 20080724
  Transmission Date: 20090506
  Serious: No
  Sender: FDA-Public Use
  Company Number: US-AMGEN-KDL297042

PATIENT
  Sex: Male

DRUGS (2)
  1. ENBREL [Suspect]
     Indication: PSORIATIC ARTHROPATHY
     Route: 058
     Dates: start: 20030201
  2. METHOTREXATE [Concomitant]
     Route: 048
     Dates: start: 20030201

REACTIONS (12)
  - ABDOMINAL DISTENSION [None]
  - BACK PAIN [None]
  - CHANGE OF BOWEL HABIT [None]
  - CONTUSION [None]
  - ERYTHEMA [None]
  - FATIGUE [None]
  - LIBIDO DECREASED [None]
  - MUSCLE TIGHTNESS [None]
  - PROSTATE EXAMINATION ABNORMAL [None]
  - PRURITUS [None]
  - VISION BLURRED [None]
  - WHITE BLOOD CELL COUNT DECREASED [None]
